FAERS Safety Report 23180690 (Version 3)
Quarter: 2023Q4

REPORT INFORMATION
  Report Type: Spontaneous
  Country: US (occurrence: US)
  Receive Date: 20231114
  Receipt Date: 20231206
  Transmission Date: 20240110
  Serious: No
  Sender: FDA-Public Use
  Company Number: US-002147023-NVSC2023US242517

PATIENT
  Age: 17 Year
  Sex: Male
  Weight: 123 kg

DRUGS (1)
  1. KYMRIAH [Suspect]
     Active Substance: TISAGENLECLEUCEL
     Indication: Acute lymphocytic leukaemia
     Dosage: UNK UNK, ONCE/SINGLE (1.5X10^8 CAR T CELLS)
     Route: 042
     Dates: start: 20231107

REACTIONS (2)
  - Vision blurred [Not Recovered/Not Resolved]
  - Eosinophilia [Unknown]

NARRATIVE: CASE EVENT DATE: 20231109
